FAERS Safety Report 8997254 (Version 1)
Quarter: 2013Q1

REPORT INFORMATION
  Report Type: Spontaneous
  Country: CO (occurrence: CO)
  Receive Date: 20130104
  Receipt Date: 20130104
  Transmission Date: 20140127
  Serious: Yes (Death, Other)
  Sender: FDA-Public Use
  Company Number: CO-009507513-1301COL000620

PATIENT
  Sex: Male

DRUGS (1)
  1. ZINTREPID [Suspect]
     Route: 048

REACTIONS (4)
  - Rhabdomyolysis [Fatal]
  - Hyperthermia [Unknown]
  - Renal function test abnormal [Unknown]
  - Haemodynamic instability [Unknown]
